FAERS Safety Report 8097494-X (Version None)
Quarter: 2012Q1

REPORT INFORMATION
  Report Type: 
  Country: None (occurrence: None)
  Receive Date: 20120129
  Receipt Date: 20120116
  Transmission Date: 20120608
  Serious: Yes (Other)
  Sender: FDA-Public Use
  Company Number: FR-BRISTOL-MYERS SQUIBB COMPANY-16367203

PATIENT
  Age: 49 Year
  Sex: Male

DRUGS (4)
  1. LAMIVUDINE [Suspect]
  2. STAVUDINE [Suspect]
  3. DIDANOSINE [Suspect]
  4. EFAVIRENZ [Suspect]

REACTIONS (1)
  - AGGRESSION [None]
